FAERS Safety Report 5389539-2 (Version None)
Quarter: 2007Q3

REPORT INFORMATION
  Report Type: 
  Country: None (occurrence: None)
  Receive Date: 20070717
  Receipt Date: 20070713
  Transmission Date: 20080115
  Serious: Yes (Life-Threatening)
  Sender: FDA-Public Use
  Company Number: US-ASTRAZENECA-2007UW16348

PATIENT
  Age: 39 Year
  Sex: Male

DRUGS (2)
  1. SEROQUEL [Suspect]
     Route: 048
  2. PROZAC [Concomitant]
     Route: 048

REACTIONS (2)
  - BODY TEMPERATURE DECREASED [None]
  - HYPOTENSION [None]
